APPROVED DRUG PRODUCT: PREGABALIN
Active Ingredient: PREGABALIN
Strength: 150MG
Dosage Form/Route: CAPSULE;ORAL
Application: A211685 | Product #005
Applicant: APOTEX INC
Approved: Jul 7, 2021 | RLD: No | RS: No | Type: DISCN